FAERS Safety Report 23149048 (Version 1)
Quarter: 2023Q4

REPORT INFORMATION
  Report Type: Spontaneous
  Country: US (occurrence: None)
  Receive Date: 20231103
  Receipt Date: 20231103
  Transmission Date: 20240110
  Serious: No
  Sender: FDA-Public Use
  Company Number: None

PATIENT
  Age: 6 Year
  Sex: Female
  Weight: 36 kg

DRUGS (4)
  1. MONTELUKAST SODIUM [Suspect]
     Active Substance: MONTELUKAST SODIUM
     Indication: Multiple allergies
     Dates: start: 20230510, end: 20231101
  2. MULTI VITAMIN WITH FLUORIDE [Concomitant]
     Active Substance: .ALPHA.-TOCOPHEROL ACETATE, DL-\ASCORBIC ACID\CHOLECALCIFEROL\CYANOCOBALAMIN\FOLIC ACID\NIACINAMIDE\
  3. MELATONIN [Concomitant]
     Active Substance: MELATONIN
  4. Children^s Claritin chewable [Concomitant]

REACTIONS (6)
  - Agitation [None]
  - Hostility [None]
  - Irritability [None]
  - Restlessness [None]
  - Disturbance in attention [None]
  - Therapy cessation [None]

NARRATIVE: CASE EVENT DATE: 20230810
